FAERS Safety Report 5212459-0 (Version None)
Quarter: 2007Q1

REPORT INFORMATION
  Report Type: 
  Country: None (occurrence: None)
  Receive Date: 20070118
  Receipt Date: 20070111
  Transmission Date: 20070707
  Serious: Yes (Hospitalization, Other)
  Sender: FDA-Public Use
  Company Number: JP-PFIZER INC-2006110918

PATIENT
  Age: 68 Year
  Sex: Female

DRUGS (12)
  1. NIFEDIPINE [Suspect]
     Dosage: DAILY DOSE:40MG
     Route: 048
     Dates: start: 19970401, end: 20020801
  2. LITHIUM CARBONATE [Concomitant]
     Indication: MENTAL DISORDER
     Route: 048
     Dates: start: 19970401, end: 19991101
  3. CARDENALIN [Concomitant]
     Dosage: DAILY DOSE:4MG
     Dates: start: 19970401
  4. RENIVACE [Concomitant]
     Dosage: DAILY DOSE:10MG
  5. KESELAN [Concomitant]
     Indication: MENTAL DISORDER
     Route: 048
     Dates: start: 19970401
  6. CONTOMIN [Concomitant]
     Indication: MENTAL DISORDER
     Route: 048
     Dates: start: 20020201
  7. BIPERIDEN HYDROCHLORIDE TAB [Concomitant]
     Indication: MENTAL DISORDER
     Route: 048
     Dates: start: 19970401
  8. SUNNYASE [Concomitant]
     Indication: GASTROINTESTINAL DISORDER
     Dates: start: 19970401
  9. AMOBAN [Concomitant]
     Indication: MENTAL DISORDER
     Route: 048
     Dates: start: 20001101
  10. NITRAZEPAM [Concomitant]
     Indication: MENTAL DISORDER
     Route: 048
  11. PURSENNID [Concomitant]
     Indication: CONSTIPATION
     Dosage: DAILY DOSE:48MG
     Route: 048
     Dates: start: 20000101
  12. ISOSORBIDE DINITRATE [Concomitant]
     Indication: CARDIAC DISORDER

REACTIONS (6)
  - HYPERKERATOSIS [None]
  - LICHEN PLANUS [None]
  - LICHENOID KERATOSIS [None]
  - PSORIASIS [None]
  - SCHIZOPHRENIA [None]
  - SQUAMOUS CELL CARCINOMA [None]
